FAERS Safety Report 26107277 (Version 1)
Quarter: 2025Q4

REPORT INFORMATION
  Report Type: Spontaneous
  Country: US (occurrence: None)
  Receive Date: 20251126
  Receipt Date: 20251126
  Transmission Date: 20260117
  Serious: Yes (Life-Threatening, Other)
  Sender: FDA-CTU
  Company Number: None

PATIENT
  Age: 34 Year
  Sex: Female
  Weight: 83.7 kg

DRUGS (3)
  1. EFFEXOR [Suspect]
     Active Substance: VENLAFAXINE HYDROCHLORIDE
     Indication: Anxiety
     Route: 048
     Dates: start: 20250915, end: 20251103
  2. Lamictal 300 [Concomitant]
  3. Levothyroxine 125 [Concomitant]

REACTIONS (13)
  - Drug withdrawal syndrome [None]
  - Agitation [None]
  - Fear [None]
  - Panic attack [None]
  - Hyperacusis [None]
  - Photosensitivity reaction [None]
  - Eye movement disorder [None]
  - Tremor [None]
  - Cognitive disorder [None]
  - Sensory disturbance [None]
  - Sleep disorder [None]
  - Feeling abnormal [None]
  - Product information content complaint [None]

NARRATIVE: CASE EVENT DATE: 20251124
